FAERS Safety Report 20235526 (Version 5)
Quarter: 2022Q1

REPORT INFORMATION
  Report Type: Report from Study
  Country: CN (occurrence: None)
  Receive Date: 20211228
  Receipt Date: 20220324
  Transmission Date: 20220424
  Serious: Yes (Hospitalization)
  Sender: FDA-Public Use
  Company Number: CN-ROCHE-2909711

PATIENT
  Age: 58 Year
  Sex: Male
  Weight: 57.5 kg

DRUGS (31)
  1. TIRAGOLUMAB [Suspect]
     Active Substance: TIRAGOLUMAB
     Indication: Oesophageal squamous cell carcinoma metastatic
     Dosage: DOSE LAST STUDY DRUG ADMIN PRIOR SAE ON 20/AUG/2021
     Route: 042
     Dates: start: 20210709
  2. ATEZOLIZUMAB [Suspect]
     Active Substance: ATEZOLIZUMAB
     Indication: Oesophageal squamous cell carcinoma metastatic
     Dosage: START DATE OF MOST RECENT DOSE OF STUDY DRUG PRIOR TO SAE 20/AUG/2021
     Route: 041
     Dates: start: 20210709
  3. PACLITAXEL [Suspect]
     Active Substance: PACLITAXEL
     Indication: Oesophageal squamous cell carcinoma metastatic
     Dosage: MOST RECENT DOSE PRIOR TO SAE RECEIVED IS 292 MG ON 09/JUL/2021
     Route: 042
     Dates: start: 20210709
  4. CISPLATIN [Suspect]
     Active Substance: CISPLATIN
     Indication: Oesophageal squamous cell carcinoma metastatic
     Dosage: MOST RECENT DOSE PRIOR TO SAE RECEIVED IS 99 MG ON 01/AUG/2021
     Route: 042
     Dates: start: 20210709
  5. HUMAN IMMUNOGLOBULIN G [Concomitant]
     Active Substance: HUMAN IMMUNOGLOBULIN G
     Indication: Immune-mediated myositis
     Route: 050
     Dates: start: 20210915, end: 20210921
  6. MYCOPHENOLATE MOFETIL [Concomitant]
     Active Substance: MYCOPHENOLATE MOFETIL
     Indication: Immune-mediated myositis
     Dosage: DISPERSIBLE TABLETS
     Route: 048
     Dates: start: 20210924, end: 20210926
  7. PREDNISONE ACETATE [Concomitant]
     Active Substance: PREDNISONE ACETATE
     Indication: Immune-mediated myositis
     Dosage: PILL
     Route: 048
     Dates: start: 20210927, end: 20210929
  8. PREDNISONE ACETATE [Concomitant]
     Active Substance: PREDNISONE ACETATE
     Dosage: PILL
     Route: 048
     Dates: start: 20211014, end: 20211023
  9. ACETAMINOPHEN\OXYCODONE HYDROCHLORIDE [Concomitant]
     Active Substance: ACETAMINOPHEN\OXYCODONE HYDROCHLORIDE
     Indication: Pain
     Route: 048
     Dates: start: 20210915, end: 20210915
  10. ACETAMINOPHEN\OXYCODONE HYDROCHLORIDE [Concomitant]
     Active Substance: ACETAMINOPHEN\OXYCODONE HYDROCHLORIDE
     Dosage: 1 TABLET
     Route: 048
     Dates: start: 20210922, end: 20210923
  11. ACETAMINOPHEN\OXYCODONE HYDROCHLORIDE [Concomitant]
     Active Substance: ACETAMINOPHEN\OXYCODONE HYDROCHLORIDE
     Route: 048
     Dates: start: 20210927
  12. ERYTHROPOIETIN [Concomitant]
     Active Substance: ERYTHROPOIETIN
     Dates: start: 20210820, end: 20210820
  13. METRONIDAZOLE [Concomitant]
     Active Substance: METRONIDAZOLE
     Dates: start: 20210820, end: 20210908
  14. CEPHALEXIN [Concomitant]
     Active Substance: CEPHALEXIN
     Dates: start: 20210820
  15. SHENG XUE BAO HE JI [Concomitant]
     Indication: Anaemia
     Dates: start: 20210831, end: 20210908
  16. ERYTHROPOIETIN [Concomitant]
     Active Substance: ERYTHROPOIETIN
     Indication: Anaemia
     Dates: start: 20210831, end: 20210906
  17. DONKEY-HIDE GELATIN [Concomitant]
     Indication: Anaemia
     Dates: start: 20210903
  18. IRON SUCROSE [Concomitant]
     Active Substance: IRON SUCROSE
     Indication: Anaemia
     Dates: start: 20210903, end: 20210906
  19. SODIUM CHLORIDE [Concomitant]
     Active Substance: SODIUM CHLORIDE
     Dates: start: 20210909, end: 20210927
  20. POTASSIUM CHLORIDE [Concomitant]
     Active Substance: POTASSIUM CHLORIDE
     Dates: start: 20210909, end: 20210909
  21. ESOMEPRAZOLE SODIUM [Concomitant]
     Active Substance: ESOMEPRAZOLE SODIUM
     Dates: start: 20210910, end: 20210926
  22. ESOMEPRAZOLE SODIUM [Concomitant]
     Active Substance: ESOMEPRAZOLE SODIUM
     Dates: start: 20211008, end: 20211013
  23. MAGNESIUM ISOGLYCYRRHIZINATE [Concomitant]
     Active Substance: MAGNESIUM ISOGLYCYRRHIZINATE
     Dates: start: 20210910, end: 20210925
  24. WATER-SOLUBLE VITAMINS [Concomitant]
     Dates: start: 20210909, end: 20210926
  25. SULFAMETHOXAZOLE [Concomitant]
     Active Substance: SULFAMETHOXAZOLE
     Dates: start: 20210916
  26. CEFOXITIN SODIUM [Concomitant]
     Active Substance: CEFOXITIN SODIUM
     Indication: Bacterial infection
     Dates: start: 20211011, end: 20211012
  27. BROMHEXINE HYDROCHLORIDE [Concomitant]
     Active Substance: BROMHEXINE HYDROCHLORIDE
     Indication: Productive cough
     Dates: start: 20211013, end: 20211013
  28. PULMICORT RESPULES [Concomitant]
     Active Substance: BUDESONIDE
     Indication: Productive cough
     Dates: start: 20211013, end: 20211013
  29. PROTEIN HYDROLYSATE [Concomitant]
     Active Substance: PROTEIN HYDROLYSATE
     Indication: Nutritional supplementation
     Dates: start: 20211014, end: 20211014
  30. NEXIUM [Concomitant]
     Active Substance: ESOMEPRAZOLE MAGNESIUM
     Dates: start: 20210927, end: 20210930
  31. FUROSEMIDE [Concomitant]
     Active Substance: FUROSEMIDE
     Indication: Polyuria
     Dates: start: 20210913, end: 20210925

REACTIONS (1)
  - Immune-mediated myositis [Not Recovered/Not Resolved]

NARRATIVE: CASE EVENT DATE: 20210908
